FAERS Safety Report 16296024 (Version 1)
Quarter: 2019Q2

REPORT INFORMATION
  Report Type: Spontaneous
  Country: US (occurrence: US)
  Receive Date: 20190510
  Receipt Date: 20190510
  Transmission Date: 20190711
  Serious: Yes (Hospitalization, Other)
  Sender: FDA-Public Use
  Company Number: US-TEVA-2019-US-1046820

PATIENT
  Sex: Male
  Weight: 64 kg

DRUGS (7)
  1. VALIUM [Concomitant]
     Active Substance: DIAZEPAM
  2. LISINOPRIL. [Concomitant]
     Active Substance: LISINOPRIL
  3. FLEXERIL [Concomitant]
     Active Substance: CYCLOBENZAPRINE HYDROCHLORIDE
  4. COPAXONE [Suspect]
     Active Substance: GLATIRAMER ACETATE
     Indication: MULTIPLE SCLEROSIS
     Route: 058
  5. AMLODIPINE [Concomitant]
     Active Substance: AMLODIPINE BESYLATE
  6. OXYCODONE [Concomitant]
     Active Substance: OXYCODONE
  7. PANTOPRAZOLE [Concomitant]
     Active Substance: PANTOPRAZOLE

REACTIONS (20)
  - Pruritus [Unknown]
  - Muscle spasms [Unknown]
  - Muscle injury [Unknown]
  - Respiratory arrest [Unknown]
  - Injection site pain [Unknown]
  - Injection site swelling [Unknown]
  - Weight decreased [Unknown]
  - Scar [Unknown]
  - Balance disorder [Unknown]
  - Mass [Unknown]
  - Blister [Unknown]
  - Injection site erythema [Unknown]
  - Flushing [Unknown]
  - Lethargy [Unknown]
  - Massage [Unknown]
  - Seizure [Unknown]
  - Hypovitaminosis [Recovering/Resolving]
  - Loss of consciousness [Unknown]
  - Product quality issue [Unknown]
  - Multiple sclerosis [Unknown]
